FAERS Safety Report 16873530 (Version 6)
Quarter: 2020Q1

REPORT INFORMATION
  Report Type: Report from Study
  Country: CN (occurrence: CN)
  Receive Date: 20191001
  Receipt Date: 20200305
  Transmission Date: 20200409
  Serious: Yes (Hospitalization)
  Sender: FDA-Public Use
  Company Number: CN-PFIZER INC-2019408639

PATIENT
  Age: 45 Year
  Sex: Female
  Weight: 72.9 kg

DRUGS (12)
  1. DAUNORUBICIN [Suspect]
     Active Substance: DAUNORUBICIN
     Indication: ACUTE MYELOID LEUKAEMIA
     Dosage: 60 MG/M2, 1X/DAY
     Route: 042
     Dates: start: 20190819, end: 20190821
  2. CYTARABINE. [Suspect]
     Active Substance: CYTARABINE
     Indication: ACUTE MYELOID LEUKAEMIA
     Dosage: 100 MG/M2, 1X/DAY
     Route: 042
     Dates: start: 20190819, end: 20190825
  3. GLASDEGIB [Suspect]
     Active Substance: GLASDEGIB
     Indication: ACUTE MYELOID LEUKAEMIA
     Dosage: 1X/DAY
     Route: 048
     Dates: start: 20190819, end: 20190903
  4. URSODEOXYCHOLIC ACID [Concomitant]
     Active Substance: URSODIOL
     Indication: BLOOD BILIRUBIN INCREASED
     Dosage: 0.25 G, 2X/DAY
     Route: 048
     Dates: start: 20190827, end: 20190914
  5. ADEMETIONINE 1,4-BUTANEDISULFONATE [Concomitant]
     Indication: BLOOD BILIRUBIN INCREASED
     Dosage: 1000 MG, 1X/DAY
     Route: 042
     Dates: start: 20190903, end: 20190916
  6. BICYCLOL [Concomitant]
     Active Substance: BICYCLOL
     Indication: ASPARTATE AMINOTRANSFERASE INCREASED
     Dosage: 50 MG, 2X/DAY
     Route: 048
     Dates: start: 20190813, end: 20190914
  7. BICYCLOL [Concomitant]
     Active Substance: BICYCLOL
     Dosage: 0.25 G, 3X/DAY
     Route: 048
     Dates: start: 20190917
  8. URSODEOXYCHOLIC ACID [Concomitant]
     Active Substance: URSODIOL
     Dosage: 0.25 G, 3X/DAY
     Route: 048
     Dates: start: 20190915
  9. ADEMETIONINE 1,4-BUTANEDISULFONATE [Concomitant]
     Dosage: 0.5 G, 3X/DAY
     Route: 048
     Dates: start: 20190917, end: 20190919
  10. OCTREOTIDE. [Concomitant]
     Active Substance: OCTREOTIDE
     Indication: DIARRHOEA
     Dosage: 1 ML, EVERY 8 HOURS
     Route: 058
     Dates: start: 20190905, end: 20190906
  11. SMECTITE [Concomitant]
     Active Substance: MONTMORILLONITE
     Indication: DIARRHOEA
     Dosage: 3 G, 3X/DAY
     Route: 048
     Dates: start: 20190901, end: 20190906
  12. BICYCLOL [Concomitant]
     Active Substance: BICYCLOL
     Indication: ALANINE AMINOTRANSFERASE INCREASED
     Dosage: 50 MG, 3X/DAY
     Route: 048
     Dates: start: 20190915, end: 20190916

REACTIONS (3)
  - Blood alkaline phosphatase increased [Recovered/Resolved]
  - Aspartate aminotransferase increased [Recovered/Resolved]
  - Blood bilirubin increased [Recovered/Resolved]

NARRATIVE: CASE EVENT DATE: 20190918
